FAERS Safety Report 7392485-6 (Version None)
Quarter: 2011Q2

REPORT INFORMATION
  Report Type: 
  Country: None (occurrence: None)
  Receive Date: 20110404
  Receipt Date: 20110321
  Transmission Date: 20111010
  Serious: Yes (Other)
  Sender: FDA-Public Use
  Company Number: FR-JNJFOC-20110308827

PATIENT
  Age: 56 Year
  Sex: Female

DRUGS (5)
  1. METHOTREXATE [Concomitant]
  2. HUMIRA [Suspect]
     Indication: SARCOIDOSIS
     Route: 058
  3. METHOTREXATE [Concomitant]
  4. CORTANCYL [Concomitant]
  5. REMICADE [Suspect]
     Indication: SARCOIDOSIS
     Route: 042

REACTIONS (1)
  - MALIGNANT MELANOMA [None]
